FAERS Safety Report 6597214-1 (Version None)
Quarter: 2010Q1

REPORT INFORMATION
  Report Type: 
  Country: None (occurrence: None)
  Receive Date: 20100223
  Receipt Date: 20100215
  Transmission Date: 20100710
  Serious: Yes (Hospitalization)
  Sender: FDA-Public Use
  Company Number: PHHO2010US02605

PATIENT
  Sex: Male

DRUGS (3)
  1. CYCLOSPORINE [Suspect]
     Indication: RENAL TRANSPLANT
     Dosage: 275 MG
     Dates: start: 20070323
  2. MYCOPHENOLATE MOFETIL [Suspect]
     Dosage: UNK
     Dates: start: 20071010
  3. PREDNISOLONE [Suspect]
     Dosage: UNK
     Dates: start: 20070429

REACTIONS (6)
  - DIARRHOEA [None]
  - DYSURIA [None]
  - NAUSEA [None]
  - PROSTATE TENDERNESS [None]
  - PYREXIA [None]
  - VOMITING [None]
